FAERS Safety Report 9837769 (Version 1)
Quarter: 2014Q1

REPORT INFORMATION
  Report Type: Spontaneous
  Country: US (occurrence: None)
  Receive Date: 20140117
  Receipt Date: 20140117
  Transmission Date: 20141002
  Serious: Yes (Hospitalization)
  Sender: FDA-Public Use
  Company Number: None

PATIENT
  Age: 74 Year
  Sex: Male

DRUGS (3)
  1. FLUOXETINE HYDROCHLORIDE [Suspect]
     Indication: DEPRESSION
  2. DEFLAZACORT [Concomitant]
  3. ANRIX CYCLOBENZAPRINE [Concomitant]

REACTIONS (3)
  - Renal failure [None]
  - Chorea [None]
  - Rhabdomyolysis [None]
